FAERS Safety Report 5530240-X (Version None)
Quarter: 2007Q4

REPORT INFORMATION
  Report Type: 
  Country: None (occurrence: None)
  Receive Date: 20071130
  Receipt Date: 20071119
  Transmission Date: 20080405
  Serious: Yes (Death, Hospitalization)
  Sender: FDA-Public Use
  Company Number: JP-TYCO HEALTHCARE/MALLINCKRODT-T200701446

PATIENT

DRUGS (5)
  1. ANAFRANIL CAP [Suspect]
  2. AMOXAPINE [Suspect]
  3. MAPROTILINE [Suspect]
  4. AMITRIPTLINE HCL [Suspect]
  5. MILNACIPRAN [Suspect]

REACTIONS (6)
  - CARDIO-RESPIRATORY ARREST [None]
  - CONVULSION [None]
  - DEATH [None]
  - HYPERPYREXIA [None]
  - OVERDOSE [None]
  - PULMONARY OEDEMA [None]
